FAERS Safety Report 12488934 (Version 4)
Quarter: 2016Q3

REPORT INFORMATION
  Report Type: Spontaneous
  Country: US (occurrence: US)
  Receive Date: 20160622
  Receipt Date: 20160826
  Transmission Date: 20161109
  Serious: Yes (Death, Life-Threatening, Hospitalization, Other)
  Sender: FDA-Public Use
  Company Number: US-B.I. PHARMACEUTICALS,INC./RIDGEFIELD-2016-BI-39582BP

PATIENT
  Sex: Male

DRUGS (3)
  1. OFEV [Suspect]
     Active Substance: NINTEDANIB
     Indication: IDIOPATHIC PULMONARY FIBROSIS
     Dosage: 300 MG
     Route: 048
     Dates: start: 201502, end: 201605
  2. OFEV [Suspect]
     Active Substance: NINTEDANIB
     Dosage: 300 MG
     Route: 048
     Dates: end: 20160622
  3. COUMADIN [Suspect]
     Active Substance: WARFARIN SODIUM
     Indication: PRODUCT USED FOR UNKNOWN INDICATION
     Route: 065

REACTIONS (9)
  - Pneumothorax [Unknown]
  - Pneumonia [Unknown]
  - Chronic respiratory failure [Fatal]
  - Haemorrhage [Unknown]
  - Lung squamous cell carcinoma stage I [Unknown]
  - Post procedural pulmonary embolism [Not Recovered/Not Resolved]
  - Haemothorax [Unknown]
  - Sepsis [Unknown]
  - Encephalopathy [Unknown]

NARRATIVE: CASE EVENT DATE: 20160622
